FAERS Safety Report 6950153 (Version 3)
Quarter: 2013Q2

REPORT INFORMATION
  Report Type: Spontaneous
  Country: US (occurrence: None)
  Receive Date: 20090227
  Receipt Date: 20130301
  Transmission Date: 20140414
  Serious: Yes (Hospitalization, Other)
  Sender: FDA-Public Use
  Company Number: RB-7406-2008

PATIENT
  Age: 0 Day
  Sex: 0

DRUGS (2)
  1. SUBUTEX [Suspect]
     Indication: DRUG DEPENDENCE
     Route: 064
     Dates: start: 20081005, end: 20081120
  2. SUBUTEX [Suspect]
     Indication: PREGNANCY
     Route: 064
     Dates: start: 20081005, end: 20081120

REACTIONS (1)
  - DRUG WITHDRAWAL SYNDROME NEONATAL [None]
